FAERS Safety Report 5388388-9 (Version None)
Quarter: 2007Q3

REPORT INFORMATION
  Report Type: 
  Country: None (occurrence: None)
  Receive Date: 20070716
  Receipt Date: 20070710
  Transmission Date: 20080115
  Serious: Yes (Other)
  Sender: FDA-Public Use
  Company Number: CHWYE867218JUN07

PATIENT
  Age: 62 Year
  Sex: Male

DRUGS (4)
  1. EFFEXOR [Suspect]
     Indication: DEPRESSION
     Route: 048
     Dates: end: 20070101
  2. EFFEXOR [Suspect]
     Route: 048
     Dates: start: 20070101
  3. ATORVASTATIN CALCIUM [Concomitant]
     Route: 048
  4. ZYPREXA [Concomitant]
     Indication: ANXIETY
     Route: 048

REACTIONS (3)
  - ABDOMINAL PAIN UPPER [None]
  - AORTIC VALVE INCOMPETENCE [None]
  - FATIGUE [None]
